FAERS Safety Report 5715944-8 (Version None)
Quarter: 2008Q2

REPORT INFORMATION
  Report Type: 
  Country: None (occurrence: None)
  Receive Date: 20080424
  Receipt Date: 20080418
  Transmission Date: 20081010
  Serious: Yes (Other)
  Sender: FDA-Public Use
  Company Number: IT-ASTRAZENECA-2008SE02017

PATIENT
  Age: 70 Year
  Sex: Female

DRUGS (5)
  1. CRESTOR [Suspect]
     Dates: start: 20071101
  2. TRIATEC [Suspect]
     Dates: start: 20071101
  3. PLAVIX [Suspect]
     Dates: start: 20071101
  4. METOPROLOL TARTRATE [Concomitant]
     Dates: start: 20071101
  5. ACETYLSALICYLIC ACID SRT [Concomitant]

REACTIONS (2)
  - DYSPNOEA [None]
  - PULMONARY FIBROSIS [None]
